FAERS Safety Report 7278169-3 (Version None)
Quarter: 2011Q1

REPORT INFORMATION
  Report Type: 
  Country: None (occurrence: None)
  Receive Date: 20110207
  Receipt Date: 20110203
  Transmission Date: 20110831
  Serious: Yes (Death)
  Sender: FDA-Public Use
  Company Number: A0911852A

PATIENT
  Sex: Female

DRUGS (2)
  1. ADVAIR [Suspect]
     Route: 065
     Dates: start: 20070901
  2. VENTOLIN HFA [Suspect]
     Route: 065
     Dates: start: 20070901

REACTIONS (1)
  - CHRONIC OBSTRUCTIVE PULMONARY DISEASE [None]
